FAERS Safety Report 25984327 (Version 1)
Quarter: 2025Q4

REPORT INFORMATION
  Report Type: Report from Study
  Country: US (occurrence: US)
  Receive Date: 20251031
  Receipt Date: 20251031
  Transmission Date: 20260117
  Serious: Yes (Hospitalization)
  Sender: ALEXION PHARMACEUTICALS
  Company Number: US-ASTRAZENECA-202510GLO023712US

PATIENT
  Age: 56 Year
  Sex: Male

DRUGS (10)
  1. SOLIRIS [Suspect]
     Active Substance: ECULIZUMAB
     Dosage: UNK
     Route: 065
  2. ULTOMIRIS [Suspect]
     Active Substance: RAVULIZUMAB-CWVZ
     Dosage: 3000 MILLIGRAM
     Route: 065
     Dates: start: 20221114, end: 20221114
  3. ULTOMIRIS [Suspect]
     Active Substance: RAVULIZUMAB-CWVZ
     Dosage: 3000 MILLIGRAM
     Route: 065
  4. ATENOLOL [Concomitant]
     Active Substance: ATENOLOL
     Indication: Tachyarrhythmia
     Dosage: 25 MILLIGRAM, BID
     Dates: start: 20151006
  5. GLUCOSAMINE SULFATE [Concomitant]
     Active Substance: GLUCOSAMINE SULFATE
     Dosage: UNK, PRN
     Dates: start: 20151006
  6. Lutein Zeaxanthin [Concomitant]
     Dosage: 15-0.7, MILLIGRAM, QD
     Dates: start: 20151006
  7. POTASSIUM [Concomitant]
     Active Substance: POTASSIUM
     Dosage: UNK, QD
     Dates: start: 20160707
  8. CALCIUM CARBONATE [Concomitant]
     Active Substance: CALCIUM CARBONATE
     Indication: Prophylaxis
     Dosage: 500 MILLIGRAM, QD
     Dates: start: 20160323
  9. ERGOCALCIFEROL [Concomitant]
     Active Substance: ERGOCALCIFEROL
     Indication: Prophylaxis
     Dosage: UNK, QD
     Dates: start: 20200603
  10. MAGNESIUM [Concomitant]
     Active Substance: MAGNESIUM
     Dosage: 200 MILLIGRAM, PRN

REACTIONS (1)
  - Bacterial prostatitis [Recovering/Resolving]

NARRATIVE: CASE EVENT DATE: 20251015
